FAERS Safety Report 25106019 (Version 2)
Quarter: 2025Q2

REPORT INFORMATION
  Report Type: Spontaneous
  Country: PL (occurrence: PL)
  Receive Date: 20250321
  Receipt Date: 20250407
  Transmission Date: 20250717
  Serious: Yes (Hospitalization, Other)
  Sender: EXELIXIS
  Company Number: PL-BRISTOL-MYERS SQUIBB COMPANY-2025-040310

PATIENT
  Age: 63 Year
  Sex: Female

DRUGS (4)
  1. CABOMETYX [Suspect]
     Active Substance: CABOZANTINIB S-MALATE
     Indication: Clear cell renal cell carcinoma
     Dates: start: 20220124
  2. CABOMETYX [Suspect]
     Active Substance: CABOZANTINIB S-MALATE
     Indication: Rhabdoid tumour
  3. NIVOLUMAB [Suspect]
     Active Substance: NIVOLUMAB
     Indication: Clear cell renal cell carcinoma
     Dates: start: 20220124
  4. NIVOLUMAB [Suspect]
     Active Substance: NIVOLUMAB
     Indication: Rhabdoid tumour

REACTIONS (4)
  - Compression fracture [Unknown]
  - Monoparesis [Unknown]
  - Procedural pain [Unknown]
  - Hypothyroidism [Unknown]

NARRATIVE: CASE EVENT DATE: 20220101
